FAERS Safety Report 5266874-X (Version None)
Quarter: 2007Q1

REPORT INFORMATION
  Report Type: 
  Country: None (occurrence: None)
  Receive Date: 20070316
  Receipt Date: 20070314
  Transmission Date: 20070707
  Serious: Yes (Other)
  Sender: FDA-Public Use
  Company Number: US-BAYER-200614425BCC

PATIENT
  Age: 35 Year
  Sex: Male
  Weight: 91 kg

DRUGS (4)
  1. ALEVE [Suspect]
     Indication: HEADACHE
     Route: 048
  2. ALEVE [Suspect]
     Route: 048
     Dates: start: 20061022
  3. RHINOCORT [Concomitant]
  4. ALLEGRA D 24 HOUR [Concomitant]

REACTIONS (2)
  - CHEST PAIN [None]
  - COSTOCHONDRITIS [None]
